APPROVED DRUG PRODUCT: UPTRAVI
Active Ingredient: SELEXIPAG
Strength: 1.4MG
Dosage Form/Route: TABLET;ORAL
Application: N207947 | Product #007 | TE Code: AB
Applicant: ACTELION PHARMACEUTICALS US INC
Approved: Dec 21, 2015 | RLD: Yes | RS: No | Type: RX

PATENTS:
Patent 9173881 | Expires: Aug 12, 2029
Patent 7205302 | Expires: Oct 31, 2026
Patent 9284280 | Expires: Jun 25, 2030
Patent 10821108 | Expires: Dec 1, 2036
Patent 10828298 | Expires: Dec 1, 2036
Patent 8791122 | Expires: Aug 1, 2030
Patent 7205302*PED | Expires: Apr 30, 2027
Patent 8791122*PED | Expires: Feb 1, 2031
Patent 9173881*PED | Expires: Feb 12, 2030
Patent 9284280*PED | Expires: Dec 25, 2030
Patent 10821108*PED | Expires: Jun 1, 2037
Patent 10828298*PED | Expires: Jun 1, 2037